FAERS Safety Report 5957213-7 (Version None)
Quarter: 2008Q4

REPORT INFORMATION
  Report Type: 
  Country: None (occurrence: None)
  Receive Date: 20081106
  Receipt Date: 20050412
  Transmission Date: 20090506
  Serious: Yes (Death)
  Sender: FDA-Public Use
  Company Number: US200711007031

PATIENT
  Sex: Female

DRUGS (4)
  1. FLUOXETINE HYDROCHLORIDE [Suspect]
     Dosage: 20 MG
  2. FLUOXETINE HCL [Suspect]
  3. PREMARIN (ESTROGENS CONJUGATED, MEDROGESTONE) [Concomitant]
  4. PROVERA [Concomitant]

REACTIONS (1)
  - DEATH [None]
